FAERS Safety Report 16721432 (Version 1)
Quarter: 2019Q3

REPORT INFORMATION
  Report Type: Spontaneous
  Country: US (occurrence: US)
  Receive Date: 20190820
  Receipt Date: 20190820
  Transmission Date: 20191005
  Serious: Yes (Other)
  Sender: FDA-Public Use
  Company Number: US-JNJFOC-20190819111

PATIENT
  Sex: Male

DRUGS (2)
  1. NIACIN. [Concomitant]
     Active Substance: NIACIN
  2. XARELTO [Suspect]
     Active Substance: RIVAROXABAN
     Indication: PRODUCT USED FOR UNKNOWN INDICATION
     Route: 048
     Dates: start: 2019

REACTIONS (2)
  - Haemorrhoidal haemorrhage [Recovered/Resolved]
  - LDL/HDL ratio decreased [Unknown]

NARRATIVE: CASE EVENT DATE: 2019
